FAERS Safety Report 6154160-5 (Version None)
Quarter: 2009Q2

REPORT INFORMATION
  Report Type: 
  Country: None (occurrence: None)
  Receive Date: 20090414
  Receipt Date: 20090401
  Transmission Date: 20091009
  Serious: Yes (Other)
  Sender: FDA-Public Use
  Company Number: US-ROCHE-621467

PATIENT
  Sex: Male
  Weight: 94 kg

DRUGS (16)
  1. FUZEON [Suspect]
     Route: 058
     Dates: start: 20050803, end: 20050829
  2. FUZEON [Suspect]
     Route: 058
     Dates: start: 20070802
  3. RALTEGRAVIR [Suspect]
     Route: 048
     Dates: start: 20080515
  4. ETRAVIRINE [Suspect]
     Route: 048
     Dates: start: 20080515
  5. LISINOPRIL [Concomitant]
     Indication: HYPERTENSION
     Route: 048
     Dates: start: 20080327
  6. AMITRIPTLINE HYDROCHLORIDE TAB [Concomitant]
     Indication: FIBROMYALGIA
     Route: 048
     Dates: start: 20080618
  7. ASPIRIN [Concomitant]
     Route: 048
     Dates: start: 20080515
  8. NEXIUM [Concomitant]
     Route: 048
     Dates: start: 20080327
  9. MEPRON [Concomitant]
     Route: 048
     Dates: start: 20060627
  10. MEPRON [Concomitant]
     Route: 048
     Dates: start: 20050720
  11. ALLOPURINOL [Concomitant]
     Indication: GOUT
     Route: 048
     Dates: start: 20050803
  12. ALLOPURINOL [Concomitant]
     Route: 048
     Dates: start: 20070125
  13. CARVEDILOL [Concomitant]
     Indication: HYPERTENSION
     Route: 048
     Dates: start: 20080327
  14. ACYCLOVIR [Concomitant]
     Indication: ANTIVIRAL PROPHYLAXIS
     Route: 048
     Dates: start: 20040623
  15. LIPITOR [Concomitant]
     Indication: HYPERLIPIDAEMIA
     Route: 048
     Dates: start: 20040921
  16. LIPITOR [Concomitant]
     Route: 048
     Dates: start: 20080515

REACTIONS (1)
  - DIABETES MELLITUS [None]
